FAERS Safety Report 6998638-0 (Version None)
Quarter: 2010Q3

REPORT INFORMATION
  Report Type: 
  Country: None (occurrence: None)
  Receive Date: 20100920
  Receipt Date: 20100331
  Transmission Date: 20110219
  Serious: No
  Sender: FDA-Public Use
  Company Number: US-ASTRAZENECA-2010SE14188

PATIENT
  Age: 12106 Day
  Sex: Male

DRUGS (3)
  1. SEROQUEL [Suspect]
     Indication: BIPOLAR DISORDER
     Route: 048
     Dates: start: 20091201, end: 20100101
  2. SEROQUEL [Suspect]
     Route: 048
     Dates: start: 20100101, end: 20100201
  3. SEROQUEL [Suspect]
     Route: 048
     Dates: start: 20100201

REACTIONS (3)
  - ANXIETY [None]
  - DRUG DOSE OMISSION [None]
  - INSOMNIA [None]
